FAERS Safety Report 6004335-0 (Version None)
Quarter: 2008Q4

REPORT INFORMATION
  Report Type: 
  Country: None (occurrence: None)
  Receive Date: 20081215
  Receipt Date: 20081215
  Transmission Date: 20090506
  Serious: Yes (Hospitalization)
  Sender: FDA-Public Use
  Company Number: None

PATIENT
  Sex: Female
  Weight: 84.369 kg

DRUGS (2)
  1. REVLIMID [Suspect]
     Indication: PROSTATE CANCER
     Dosage: 30 MG QD PO
     Route: 048
     Dates: start: 20081118, end: 20081211
  2. TAXOTERE [Suspect]
     Indication: PROSTATE CANCER
     Dosage: 75MG/M2 Q3W IV
     Route: 042
     Dates: start: 20081118, end: 20081211

REACTIONS (2)
  - HAEMATEMESIS [None]
  - HAEMOPTYSIS [None]
